FAERS Safety Report 8605128-8 (Version None)
Quarter: 2012Q3

REPORT INFORMATION
  Report Type: 
  Country: None (occurrence: None)
  Receive Date: 20120820
  Receipt Date: 20120808
  Transmission Date: 20120928
  Serious: Yes (Hospitalization)
  Sender: FDA-Public Use
  Company Number: FR-BRISTOL-MYERS SQUIBB COMPANY-16853848

PATIENT
  Age: 80 Year
  Sex: Female
  Weight: 97 kg

DRUGS (8)
  1. GLUCOPHAGE [Suspect]
     Indication: TYPE 2 DIABETES MELLITUS
     Dosage: 1 DF:3 DF
     Route: 048
     Dates: end: 20120519
  2. VICTOZA [Suspect]
     Indication: TYPE 2 DIABETES MELLITUS
     Dosage: 1 DF = 6MG/ML
     Route: 058
     Dates: start: 20110901, end: 20120519
  3. ZOLPIDEM [Concomitant]
     Route: 048
  4. LEVOTHYROXINE SODIUM [Concomitant]
     Dosage: TABS
     Route: 048
  5. ATARAX [Concomitant]
     Route: 048
  6. LASIX [Suspect]
     Indication: HYPERTENSION
     Route: 048
     Dates: end: 20120519
  7. PREVISCAN [Concomitant]
     Dosage: TABS
     Route: 048
  8. POLYETHYLENE GLYCOL [Concomitant]
     Dosage: MACROGOL 4000
     Route: 048

REACTIONS (1)
  - RENAL FAILURE ACUTE [None]
